FAERS Safety Report 7939108-2 (Version None)
Quarter: 2011Q4

REPORT INFORMATION
  Report Type: 
  Country: None (occurrence: None)
  Receive Date: 20111124
  Receipt Date: 20110808
  Transmission Date: 20120403
  Serious: Yes (Other)
  Sender: FDA-Public Use
  Company Number: US-ROCHE-1015364

PATIENT
  Sex: Female

DRUGS (1)
  1. NAPROXEN SODIUM [Suspect]
     Indication: ARTHRITIS

REACTIONS (10)
  - FEELING ABNORMAL [None]
  - CHEST PAIN [None]
  - MUSCULAR WEAKNESS [None]
  - BLOOD PRESSURE INCREASED [None]
  - SWELLING [None]
  - FEELING JITTERY [None]
  - FLUID RETENTION [None]
  - MUSCLE SPASMS [None]
  - DYSPHAGIA [None]
  - ABDOMINAL DISCOMFORT [None]
